FAERS Safety Report 5682484-4 (Version None)
Quarter: 2008Q1

REPORT INFORMATION
  Report Type: 
  Country: None (occurrence: None)
  Receive Date: 20080327
  Receipt Date: 20080326
  Transmission Date: 20080703
  Serious: Yes (Other)
  Sender: FDA-Public Use
  Company Number: JP-BRISTOL-MYERS SQUIBB COMPANY-14124127

PATIENT
  Age: 2 Year
  Sex: Female

DRUGS (6)
  1. ETOPOSIDE [Suspect]
     Indication: HISTIOCYTOSIS HAEMATOPHAGIC
  2. IMMUNE GLOBULIN INTRAVENOUS (HUMAN) [Suspect]
     Indication: HISTIOCYTOSIS HAEMATOPHAGIC
  3. CYCLOSPORINE [Suspect]
     Indication: HISTIOCYTOSIS HAEMATOPHAGIC
  4. DEXAMETHASONE TAB [Suspect]
     Indication: HISTIOCYTOSIS HAEMATOPHAGIC
  5. METHYLPREDNISOLONE [Suspect]
     Indication: HISTIOCYTOSIS HAEMATOPHAGIC
  6. METHOTREXATE [Suspect]
     Indication: HISTIOCYTOSIS HAEMATOPHAGIC

REACTIONS (1)
  - AXONAL NEUROPATHY [None]
